FAERS Safety Report 18370535 (Version 2)
Quarter: 2020Q4

REPORT INFORMATION
  Report Type: Report from Study
  Country: MT (occurrence: MT)
  Receive Date: 20201012
  Receipt Date: 20201021
  Transmission Date: 20210114
  Serious: Yes (Hospitalization)
  Sender: FDA-Public Use
  Company Number: NVSC2020MT272799

PATIENT
  Age: 68 Year
  Sex: Female

DRUGS (1)
  1. BYL719 [Suspect]
     Active Substance: ALPELISIB
     Indication: BREAST CANCER METASTATIC
     Dosage: 200 MG
     Route: 048

REACTIONS (1)
  - Diabetes mellitus inadequate control [Recovering/Resolving]
